FAERS Safety Report 16104989 (Version 3)
Quarter: 2019Q2

REPORT INFORMATION
  Report Type: Spontaneous
  Country: US (occurrence: US)
  Receive Date: 20190322
  Receipt Date: 20190430
  Transmission Date: 20190711
  Serious: No
  Sender: FDA-Public Use
  Company Number: US-HTU-2019US018470

PATIENT
  Age: 64 Year
  Sex: Female

DRUGS (8)
  1. VALSARTAN AND HYDROCHLOROTHIAZIDE [Concomitant]
     Active Substance: HYDROCHLOROTHIAZIDE\VALSARTAN
  2. METOPROLOL SUCCINATE. [Concomitant]
     Active Substance: METOPROLOL SUCCINATE
  3. TACROLIMUS. [Concomitant]
     Active Substance: TACROLIMUS
  4. VALCHLOR [Suspect]
     Active Substance: MECHLORETHAMINE
     Indication: CUTANEOUS T-CELL LYMPHOMA
     Dosage: UNK, TWICE DAILY
     Route: 061
     Dates: start: 20190102
  5. PIMECROLIMUS. [Concomitant]
     Active Substance: PIMECROLIMUS
  6. DORZOLAMIDE [Concomitant]
     Active Substance: DORZOLAMIDE
  7. ATORVASTATIN CALCIUM. [Concomitant]
     Active Substance: ATORVASTATIN CALCIUM
  8. AMLODIPINE BESYLATE. [Concomitant]
     Active Substance: AMLODIPINE BESYLATE

REACTIONS (5)
  - Product storage error [Unknown]
  - Musculoskeletal stiffness [Recovered/Resolved]
  - Extra dose administered [Unknown]
  - Product dose omission [Unknown]
  - Lymphadenopathy [Unknown]

NARRATIVE: CASE EVENT DATE: 201901
